FAERS Safety Report 5300998-3 (Version None)
Quarter: 2007Q2

REPORT INFORMATION
  Report Type: 
  Country: None (occurrence: None)
  Receive Date: 20070418
  Receipt Date: 20070116
  Transmission Date: 20071010
  Serious: No
  Sender: FDA-Public Use
  Company Number: US-AMGEN-US206954

PATIENT
  Age: 49 Year
  Sex: Male

DRUGS (4)
  1. SENSIPAR [Suspect]
     Indication: HYPERPARATHYROIDISM SECONDARY
     Dates: start: 20060101
  2. PHOSLO [Concomitant]
  3. HEPARIN [Concomitant]
  4. SODIUM CHLORIDE [Concomitant]

REACTIONS (1)
  - HAEMOGLOBIN INCREASED [None]
